FAERS Safety Report 4837502-X (Version None)
Quarter: 2005Q4

REPORT INFORMATION
  Report Type: 
  Country: None (occurrence: None)
  Receive Date: 20051128
  Receipt Date: 20051119
  Transmission Date: 20060501
  Serious: Yes (Other)
  Sender: FDA-Public Use
  Company Number: GB-GLAXOSMITHKLINE-B0401071A

PATIENT
  Sex: Female

DRUGS (1)
  1. LAMOTRIGINE [Suspect]
     Dosage: 300MG TWICE PER DAY
     Route: 048

REACTIONS (3)
  - DYSTONIA [None]
  - MEDICATION ERROR [None]
  - OCULOGYRATION [None]
